FAERS Safety Report 5499173-1 (Version None)
Quarter: 2007Q4

REPORT INFORMATION
  Report Type: 
  Country: None (occurrence: None)
  Receive Date: 20071026
  Receipt Date: 20071022
  Transmission Date: 20080405
  Serious: Yes (Death)
  Sender: FDA-Public Use
  Company Number: US-BRISTOL-MYERS SQUIBB COMPANY-13950746

PATIENT

DRUGS (1)
  1. DEFINITY [Suspect]

REACTIONS (1)
  - CARDIAC ARREST [None]
